FAERS Safety Report 10161893 (Version 1)
Quarter: 2014Q2

REPORT INFORMATION
  Report Type: Spontaneous
  Country: US (occurrence: None)
  Receive Date: 20140508
  Receipt Date: 20140508
  Transmission Date: 20141212
  Serious: Yes (Hospitalization)
  Sender: FDA-Public Use
  Company Number: None

PATIENT
  Age: 57 Year
  Sex: Male

DRUGS (2)
  1. RIBAVIRIN [Suspect]
     Indication: CHRONIC HEPATITIS C
     Route: 048
     Dates: start: 20140224
  2. SOVALDI [Suspect]
     Indication: CHRONIC HEPATITIS C

REACTIONS (3)
  - Renal failure [None]
  - Cardiac failure [None]
  - Liver disorder [None]
